FAERS Safety Report 14268176 (Version 2)
Quarter: 2018Q2

REPORT INFORMATION
  Report Type: Spontaneous
  Country: GB (occurrence: GB)
  Receive Date: 20171211
  Receipt Date: 20180528
  Transmission Date: 20180711
  Serious: Yes (Hospitalization, Disabling, Other)
  Sender: FDA-Public Use
  Company Number: GB-B.I. PHARMACEUTICALS,INC./RIDGEFIELD-2017-12-000058

PATIENT
  Age: 67 Year
  Sex: Male

DRUGS (4)
  1. PRADAXA [Suspect]
     Active Substance: DABIGATRAN ETEXILATE MESYLATE
     Indication: PRODUCT USED FOR UNKNOWN INDICATION
     Route: 065
     Dates: start: 20161115, end: 20171125
  2. TINZAPARIN [Concomitant]
     Active Substance: TINZAPARIN
     Indication: PERIPHERAL EMBOLISM
     Route: 065
     Dates: start: 20171125, end: 20171201
  3. ELIQUIS [Concomitant]
     Active Substance: APIXABAN
     Indication: PRODUCT USED FOR UNKNOWN INDICATION
     Route: 065
     Dates: start: 20171201
  4. XARELTO [Suspect]
     Active Substance: RIVAROXABAN
     Indication: DEEP VEIN THROMBOSIS
     Route: 048
     Dates: start: 201306, end: 20161113

REACTIONS (22)
  - Arthralgia [Not Recovered/Not Resolved]
  - Feeling of despair [Unknown]
  - Anal injury [Unknown]
  - Musculoskeletal stiffness [Unknown]
  - Pain in extremity [Not Recovered/Not Resolved]
  - Penile size reduced [Not Recovered/Not Resolved]
  - Influenza like illness [Unknown]
  - Limb discomfort [Not Recovered/Not Resolved]
  - Gastrointestinal disorder [Unknown]
  - Depression [Unknown]
  - Musculoskeletal pain [Not Recovered/Not Resolved]
  - Gingival bleeding [Recovered/Resolved]
  - Arthropathy [Not Recovered/Not Resolved]
  - Vitreous detachment [Unknown]
  - Muscle disorder [Not Recovered/Not Resolved]
  - Cough [Unknown]
  - Urinary incontinence [Not Recovered/Not Resolved]
  - Muscle spasms [Unknown]
  - Sensory disturbance [Unknown]
  - Condition aggravated [Unknown]
  - Renal pain [Recovered/Resolved]
  - Myocardial infarction [Unknown]

NARRATIVE: CASE EVENT DATE: 2013
